FAERS Safety Report 8843673 (Version 1)
Quarter: 2012Q4

REPORT INFORMATION
  Report Type: 
  Country: RO (occurrence: RO)
  Receive Date: 20121016
  Receipt Date: 20121016
  Transmission Date: 20130627
  Serious: Yes (Other)
  Sender: FDA-Public Use
  Company Number: RO-ROCHE-1142365

PATIENT
  Age: 47 Year
  Sex: Female

DRUGS (2)
  1. BEVACIZUMAB [Suspect]
     Indication: BREAST CANCER METASTATIC
     Route: 065
     Dates: start: 201001
  2. PACLITAXEL [Suspect]
     Indication: BREAST CANCER METASTATIC
     Route: 065
     Dates: start: 20090519

REACTIONS (6)
  - Neuropathy peripheral [Unknown]
  - Neutropenia [Unknown]
  - Neuropathy peripheral [Unknown]
  - Leukopenia [Unknown]
  - Toxicity to various agents [Unknown]
  - Gastrointestinal toxicity [Unknown]
